FAERS Safety Report 16255769 (Version 2)
Quarter: 2019Q2

REPORT INFORMATION
  Report Type: Spontaneous
  Country: US (occurrence: US)
  Receive Date: 20190430
  Receipt Date: 20190516
  Transmission Date: 20190711
  Serious: Yes (Other)
  Sender: FDA-Public Use
  Company Number: US-HIKMA PHARMACEUTICALS USA INC.-US-H14001-19-02700

PATIENT
  Age: 55 Year
  Sex: Male
  Weight: 85 kg

DRUGS (15)
  1. LIDOCAINE. [Suspect]
     Active Substance: LIDOCAINE
     Indication: PROCEDURAL PAIN
     Route: 040
  2. CIPROFLOXACIN. [Suspect]
     Active Substance: CIPROFLOXACIN
     Indication: PRODUCT USED FOR UNKNOWN INDICATION
     Route: 042
  3. CANDESARTAN. [Concomitant]
     Active Substance: CANDESARTAN
     Indication: PRODUCT USED FOR UNKNOWN INDICATION
     Route: 048
  4. ATAZANAVIR. [Suspect]
     Active Substance: ATAZANAVIR
     Indication: HIV INFECTION
     Route: 048
  5. METOPROLOL SUCCINATE. [Concomitant]
     Active Substance: METOPROLOL SUCCINATE
     Indication: PRODUCT USED FOR UNKNOWN INDICATION
     Route: 048
  6. RITONAVIR. [Suspect]
     Active Substance: RITONAVIR
     Indication: HIV INFECTION
     Route: 048
  7. HEPARIN [Concomitant]
     Active Substance: HEPARIN SODIUM
     Indication: PRODUCT USED FOR UNKNOWN INDICATION
     Route: 058
  8. LAMIVUDINE. [Suspect]
     Active Substance: LAMIVUDINE
     Indication: HIV INFECTION
     Route: 048
  9. FENTANYL. [Concomitant]
     Active Substance: FENTANYL
     Indication: ANALGESIC THERAPY
     Route: 042
  10. VANCOMYCIN [Concomitant]
     Active Substance: VANCOMYCIN
     Indication: PRODUCT USED FOR UNKNOWN INDICATION
     Route: 042
  11. LIDOCAINE. [Interacting]
     Active Substance: LIDOCAINE
     Dosage: 1 MG/KG/H
     Route: 041
  12. ROSUVASTATIN. [Concomitant]
     Active Substance: ROSUVASTATIN
     Indication: PRODUCT USED FOR UNKNOWN INDICATION
     Dosage: QPM
     Route: 048
  13. LIDOCAINE. [Interacting]
     Active Substance: LIDOCAINE
     Dosage: 2 MG/KG/H
     Route: 041
  14. ABACAVIR. [Suspect]
     Active Substance: ABACAVIR
     Indication: HIV INFECTION
     Route: 048
  15. ACETYLSALICYLIC ACID [Concomitant]
     Active Substance: ASPIRIN
     Indication: PRODUCT USED FOR UNKNOWN INDICATION
     Route: 048

REACTIONS (14)
  - Drug level increased [Unknown]
  - Loss of consciousness [Recovered/Resolved]
  - Feeling hot [Unknown]
  - Oxygen saturation decreased [Recovered/Resolved]
  - Electrocardiogram T wave abnormal [Unknown]
  - Hypertension [Unknown]
  - Pyrexia [Unknown]
  - Dizziness [Unknown]
  - Tachycardia [Unknown]
  - Hyperhidrosis [Unknown]
  - Off label use [Unknown]
  - Drug interaction [Unknown]
  - Toxicity to various agents [Unknown]
  - Sinus tachycardia [Unknown]
